FAERS Safety Report 9771445 (Version 1)
Quarter: 2013Q4

REPORT INFORMATION
  Report Type: Spontaneous
  Country: US (occurrence: US)
  Receive Date: 20131219
  Receipt Date: 20131219
  Transmission Date: 20140711
  Serious: No
  Sender: FDA-Public Use
  Company Number: US-B.I. PHARMACEUTICALS,INC./RIDGEFIELD-2013-BI-40195BP

PATIENT
  Age: 84 Year
  Sex: Male
  Weight: 70 kg

DRUGS (10)
  1. PRADAXA [Suspect]
     Indication: ATRIAL FIBRILLATION
     Dosage: 300 MG
     Route: 048
     Dates: start: 201311, end: 201311
  2. PRADAXA [Suspect]
     Dosage: 150 MG
     Route: 048
     Dates: start: 201311
  3. INSULIN [Concomitant]
     Indication: DIABETES MELLITUS
     Dosage: FORMULATION: SUBCUTANEOUS
     Route: 058
  4. LASIX [Concomitant]
     Indication: FLUID RETENTION
     Route: 048
  5. CRESTOR [Concomitant]
     Indication: BLOOD CHOLESTEROL INCREASED
     Route: 048
  6. QUALAQUIN [Concomitant]
     Indication: MUSCLE SPASMS
     Route: 048
  7. GABAPENTIN [Concomitant]
     Indication: PAIN
     Dosage: 100 MG
     Route: 048
  8. PROSCAR [Concomitant]
     Dosage: 5 MG
     Route: 048
  9. TOPROL [Concomitant]
     Indication: HYPERTENSION
     Dosage: 40 MG
     Route: 048
  10. PANCREASE [Concomitant]
     Indication: PANCREATITIS
     Route: 048

REACTIONS (3)
  - Haematoma [Recovered/Resolved]
  - Abdominal distension [Not Recovered/Not Resolved]
  - Nausea [Not Recovered/Not Resolved]
